FAERS Safety Report 5327184-5 (Version None)
Quarter: 2007Q2

REPORT INFORMATION
  Report Type: 
  Country: None (occurrence: None)
  Receive Date: 20070517
  Receipt Date: 20070510
  Transmission Date: 20071010
  Serious: Yes (Hospitalization)
  Sender: FDA-Public Use
  Company Number: AT-AMGEN-US223315

PATIENT
  Sex: Female

DRUGS (7)
  1. ENBREL [Suspect]
     Indication: POLYARTHRITIS
     Route: 058
     Dates: start: 20030101, end: 20070405
  2. AMARYL [Concomitant]
     Indication: DIABETES MELLITUS
     Dosage: 2 MG
  3. CONCOR PLUS [Concomitant]
  4. CO-DIOVAN [Concomitant]
  5. THROMBO ASS [Concomitant]
     Indication: HYPERTENSION
  6. GLUCOPHAGE [Concomitant]
     Indication: DIABETES MELLITUS
  7. ACTOS [Concomitant]
     Indication: HYPERTENSION
     Dosage: 45 MG

REACTIONS (1)
  - LEUKOCYTOCLASTIC VASCULITIS [None]
